FAERS Safety Report 10190516 (Version 1)
Quarter: 2014Q2

REPORT INFORMATION
  Report Type: Report from Study
  Country: CO (occurrence: CO)
  Receive Date: 20140523
  Receipt Date: 20140523
  Transmission Date: 20141212
  Serious: Yes (Hospitalization)
  Sender: FDA-Public Use
  Company Number: CO-ROCHE-GNE323845

PATIENT
  Age: 24 Year
  Sex: Female

DRUGS (1)
  1. DORNASE ALFA [Suspect]
     Indication: CYSTIC FIBROSIS
     Dosage: UNK
     Route: 055
     Dates: start: 20110622

REACTIONS (2)
  - Cough [Recovering/Resolving]
  - Pyrexia [Recovering/Resolving]
